FAERS Safety Report 9097947 (Version 1)
Quarter: 2013Q1

REPORT INFORMATION
  Report Type: Spontaneous
  Country: US (occurrence: US)
  Receive Date: 20130212
  Receipt Date: 20130212
  Transmission Date: 20140127
  Serious: No
  Sender: FDA-Public Use
  Company Number: US-PFIZER INC-2013051642

PATIENT
  Age: 71 Year
  Sex: Female
  Weight: 81.63 kg

DRUGS (2)
  1. PRISTIQ [Suspect]
     Indication: DEPRESSION
     Dosage: 100 MG, DAILY
     Dates: start: 2010
  2. ABILIFY [Concomitant]
     Dosage: UNK

REACTIONS (5)
  - Drug ineffective [Unknown]
  - Night sweats [Unknown]
  - Feeling hot [Unknown]
  - Dizziness [Unknown]
  - Hyperhidrosis [Unknown]
